FAERS Safety Report 19089211 (Version 2)
Quarter: 2025Q4

REPORT INFORMATION
  Report Type: Spontaneous
  Country: EU (occurrence: EU)
  Receive Date: 20210403
  Receipt Date: 20251017
  Transmission Date: 20260118
  Serious: Yes (Other)
  Sender: AUROBINDO
  Company Number: EU-KRKA-PL2021K04067LIT

PATIENT
  Age: 6 Year
  Sex: Male

DRUGS (1)
  1. AMOXICILLIN [Suspect]
     Active Substance: AMOXICILLIN
     Indication: Prophylaxis
     Dosage: 40 MILLIGRAM/KILOGRAM, ONCE A DAY (20 MG/KG, 2X PER DAY)
     Route: 065

REACTIONS (1)
  - Drug ineffective [Recovering/Resolving]
